FAERS Safety Report 5643180-2 (Version None)
Quarter: 2008Q1

REPORT INFORMATION
  Report Type: 
  Country: None (occurrence: None)
  Receive Date: 20080228
  Receipt Date: 20080128
  Transmission Date: 20080703
  Serious: No
  Sender: FDA-Public Use
  Company Number: US-BAYER-200812412NA

PATIENT
  Sex: Female

DRUGS (1)
  1. AVELOX [Suspect]
     Indication: PNEUMONIA
     Route: 048
     Dates: start: 20071124, end: 20071129

REACTIONS (4)
  - GASTRIC DISORDER [None]
  - MUSCLE STRAIN [None]
  - PAIN [None]
  - ROTATOR CUFF SYNDROME [None]
